FAERS Safety Report 5583739-4 (Version None)
Quarter: 2008Q1

REPORT INFORMATION
  Report Type: 
  Country: None (occurrence: None)
  Receive Date: 20080102
  Receipt Date: 20071221
  Transmission Date: 20080703
  Serious: Yes (Death)
  Sender: FDA-Public Use
  Company Number: 2007BI025337

PATIENT
  Age: 45 Year
  Sex: Female
  Weight: 42 kg

DRUGS (6)
  1. TYSABRI [Suspect]
     Indication: MULTIPLE SCLEROSIS RELAPSE
     Dosage: QM;IV
     Route: 042
     Dates: start: 20071020, end: 20071122
  2. ATENOLOL [Concomitant]
  3. OXYBUTININ [Concomitant]
  4. DIAZEPAM [Concomitant]
  5. LEVONORGESTREL [Concomitant]
  6. FELODIPINE [Concomitant]

REACTIONS (3)
  - DEMYELINATION [None]
  - MULTIPLE SCLEROSIS RELAPSE [None]
  - PULMONARY EMBOLISM [None]
